FAERS Safety Report 9740104 (Version 2)
Quarter: 2013Q4

REPORT INFORMATION
  Report Type: Spontaneous
  Country: FR (occurrence: FR)
  Receive Date: 20131209
  Receipt Date: 20131209
  Transmission Date: 20140711
  Serious: Yes (Hospitalization)
  Sender: FDA-Public Use
  Company Number: FR-BRISTOL-MYERS SQUIBB COMPANY-19788199

PATIENT
  Age: 83 Year
  Sex: Female

DRUGS (7)
  1. COUMADIN TABS [Suspect]
     Indication: ATRIAL FIBRILLATION
     Dosage: 1DF:  5 AND 4 MG ON ALTERNATE DAYS
     Route: 048
     Dates: start: 201103
  2. LASILIX [Concomitant]
     Dosage: LASILIX 20MG,1DF: 1TAB IN MORNING
  3. CORDARONE [Concomitant]
     Dosage: CORDARONE 200 MG,1DF: 1TABLET IN THE MORNING
  4. INEXIUM [Concomitant]
     Dosage: INEXIUM 20 MG,1DF: 1TABLET IN THE EVENING
  5. FLUVASTATIN [Concomitant]
     Dosage: FLUVASTATIN 40 MG,1DF: 1TABLET IN THE EVENING
  6. SERETIDE [Concomitant]
     Dosage: TIDE 500,1DF: ONE PUFF IN THE MORNING AND IN THE EVENING
  7. VENTOLINE [Concomitant]
     Dosage: 1DF: TWO PUFFS,IF NECESSARY

REACTIONS (3)
  - Gastrointestinal haemorrhage [Recovering/Resolving]
  - Iron deficiency anaemia [Recovering/Resolving]
  - Diverticulum intestinal [Recovering/Resolving]
